FAERS Safety Report 10290861 (Version 1)
Quarter: 2014Q3

REPORT INFORMATION
  Report Type: Spontaneous
  Country: GB (occurrence: None)
  Receive Date: 20140708
  Receipt Date: 20140708
  Transmission Date: 20150326
  Serious: Yes (Other)
  Sender: FDA-Public Use
  Company Number: AUR-APL-2014-07028

PATIENT
  Age: 16 Year
  Sex: Female
  Weight: 74 kg

DRUGS (1)
  1. FLUOXETINE [Suspect]
     Active Substance: FLUOXETINE\FLUOXETINE HYDROCHLORIDE
     Indication: DEPRESSION
     Dosage: 40 MG, UNK, UNKNOWN
     Dates: start: 20130710, end: 20130807

REACTIONS (2)
  - Migraine [None]
  - Photophobia [None]

NARRATIVE: CASE EVENT DATE: 20130712
